FAERS Safety Report 14793741 (Version 3)
Quarter: 2021Q2

REPORT INFORMATION
  Report Type: Report from Study
  Country: CA (occurrence: CA)
  Receive Date: 20180423
  Receipt Date: 20210609
  Transmission Date: 20210716
  Serious: Yes (Other)
  Sender: FDA-Public Use
  Company Number: CA-GLAXOSMITHKLINE-CA2018GSK067794

PATIENT
  Sex: Male

DRUGS (16)
  1. SPORANOX [Suspect]
     Active Substance: ITRACONAZOLE
     Indication: PRODUCT USED FOR UNKNOWN INDICATION
     Dosage: 3 DF, QD, 100 MG
  2. ATIVAN [Suspect]
     Active Substance: LORAZEPAM
     Indication: PRODUCT USED FOR UNKNOWN INDICATION
     Dosage: UNK
  3. CETIRIZINE [Suspect]
     Active Substance: CETIRIZINE HYDROCHLORIDE
     Indication: PRODUCT USED FOR UNKNOWN INDICATION
     Dosage: UNK
  4. SPORANOX [Suspect]
     Active Substance: ITRACONAZOLE
     Dosage: 200 MG, QD
  5. SYMBICORT [Suspect]
     Active Substance: BUDESONIDE\FORMOTEROL FUMARATE DIHYDRATE
     Indication: PRODUCT USED FOR UNKNOWN INDICATION
     Dosage: 2 PUFF(S), TID
  6. MEPOLIZUMAB [Suspect]
     Active Substance: MEPOLIZUMAB
     Indication: ASTHMA
     Dosage: 100 MG, UNK
     Route: 042
  7. SALBUTAMOL SULPHATE [Suspect]
     Active Substance: ALBUTEROL SULFATE
     Indication: ASTHMA
     Dosage: UNK
  8. REACTINE (CETIRIZINE HYDROCHLORIDE) [Suspect]
     Active Substance: CETIRIZINE HYDROCHLORIDE
     Indication: PRODUCT USED FOR UNKNOWN INDICATION
     Dosage: UNK
  9. SPORANOX [Suspect]
     Active Substance: ITRACONAZOLE
     Dosage: 2 DF, QD, 200 MG.
  10. SALBUTAMOL SULPHATE [Suspect]
     Active Substance: ALBUTEROL SULFATE
     Indication: ASTHMA
     Dosage: UNK
  11. CITALOPRAM [Suspect]
     Active Substance: CITALOPRAM HYDROBROMIDE
     Indication: PRODUCT USED FOR UNKNOWN INDICATION
     Dosage: 20 MG, QD
  12. PREDNISONE. [Suspect]
     Active Substance: PREDNISONE
     Indication: PRODUCT USED FOR UNKNOWN INDICATION
     Dosage: 40 MG, QD
  13. SYMBICORT [Suspect]
     Active Substance: BUDESONIDE\FORMOTEROL FUMARATE DIHYDRATE
     Indication: PRODUCT USED FOR UNKNOWN INDICATION
     Dosage: 3 DF, QD, 2 DOSAGE FORM
     Route: 055
  14. AZITHROMYCIN ANHYDROUS. [Concomitant]
     Active Substance: AZITHROMYCIN ANHYDROUS
     Indication: PRODUCT USED FOR UNKNOWN INDICATION
     Dosage: 500 MG, QD
  15. RABEPRAZOLE [Suspect]
     Active Substance: RABEPRAZOLE
     Indication: PRODUCT USED FOR UNKNOWN INDICATION
     Dosage: UNK
  16. NUCALA [Suspect]
     Active Substance: MEPOLIZUMAB
     Indication: ASTHMA
     Dosage: 100 MG, Z
     Route: 042
     Dates: start: 20190418

REACTIONS (27)
  - Rash [Unknown]
  - Tendon disorder [Unknown]
  - Folliculitis [Unknown]
  - Chest pain [Unknown]
  - Anxiety [Unknown]
  - Sinusitis [Unknown]
  - Haemoptysis [Unknown]
  - Cough [Unknown]
  - Blood count abnormal [Unknown]
  - Bronchial disorder [Unknown]
  - Lymphadenopathy [Unknown]
  - Chest discomfort [Recovering/Resolving]
  - Respiratory disorder [Unknown]
  - Sinus congestion [Unknown]
  - Forced expiratory volume decreased [Unknown]
  - Mycobacterial infection [Unknown]
  - Bronchiectasis [Unknown]
  - Condition aggravated [Unknown]
  - Upper respiratory tract infection [Unknown]
  - Bronchopulmonary aspergillosis allergic [Unknown]
  - Upper respiratory fungal infection [Unknown]
  - Weight increased [Unknown]
  - Parathyroid gland enlargement [Unknown]
  - Secretion discharge [Unknown]
  - Hyperventilation [Unknown]
  - Lung disorder [Unknown]
  - Obstructive airways disorder [Unknown]
